FAERS Safety Report 10032586 (Version 2)
Quarter: 2014Q2

REPORT INFORMATION
  Report Type: Spontaneous
  Country: US (occurrence: US)
  Receive Date: 20140324
  Receipt Date: 20140523
  Transmission Date: 20141212
  Serious: Yes (Hospitalization)
  Sender: FDA-Public Use
  Company Number: US-GLAXOSMITHKLINE-A0911676A

PATIENT
  Age: 50 Year
  Sex: Male

DRUGS (3)
  1. AVANDAMET [Suspect]
     Indication: DIABETES MELLITUS
     Route: 048
     Dates: start: 20030520, end: 20050323
  2. AVANDIA [Suspect]
     Indication: DIABETES MELLITUS
     Dosage: 8MG PER DAY
     Route: 048
     Dates: start: 2004, end: 20100129
  3. ROSIGLITAZONE MALEATE [Suspect]
     Indication: DIABETES MELLITUS
     Dosage: 8MG PER DAY
     Route: 048
     Dates: end: 201006

REACTIONS (7)
  - Coronary artery disease [Unknown]
  - Arrhythmia [Unknown]
  - Electrocardiogram abnormal [Unknown]
  - Echocardiogram abnormal [Unknown]
  - Chest pain [Unknown]
  - Angiogram [Unknown]
  - Angina pectoris [Unknown]
